FAERS Safety Report 10337984 (Version 1)
Quarter: 2014Q3

REPORT INFORMATION
  Report Type: Spontaneous
  Country: FR (occurrence: FR)
  Receive Date: 20140724
  Receipt Date: 20140724
  Transmission Date: 20150326
  Serious: Yes (Death, Hospitalization)
  Sender: FDA-Public Use
  Company Number: PHHY2014FR088823

PATIENT
  Age: 65 Year
  Sex: Male

DRUGS (3)
  1. MYCOPHENOLATE [Suspect]
     Active Substance: MYCOPHENOLIC ACID
     Indication: IMMUNOSUPPRESSION
  2. TACROLIMUS. [Suspect]
     Active Substance: TACROLIMUS
     Indication: IMMUNOSUPPRESSION
  3. CICLOSPORIN [Suspect]
     Active Substance: CYCLOSPORINE
     Indication: IMMUNOSUPPRESSION

REACTIONS (21)
  - Splenomegaly [Unknown]
  - Histiocytosis haematophagic [Unknown]
  - Weight decreased [Unknown]
  - Diarrhoea [Unknown]
  - Pancytopenia [Unknown]
  - Epistaxis [Unknown]
  - Hemiplegia [Unknown]
  - Thrombocytopenia [Recovering/Resolving]
  - Lymphopenia [Unknown]
  - Renal failure [Not Recovered/Not Resolved]
  - Pyrexia [Unknown]
  - Anaemia [Unknown]
  - Mycobacterial infection [Unknown]
  - Granuloma [Unknown]
  - Ecchymosis [Unknown]
  - Haematoma [Unknown]
  - Death [Fatal]
  - Coma [Not Recovered/Not Resolved]
  - Neurological decompensation [Unknown]
  - Acid fast bacilli infection [Unknown]
  - Gingival bleeding [Unknown]

NARRATIVE: CASE EVENT DATE: 201206
